FAERS Safety Report 7650853-9 (Version None)
Quarter: 2011Q3

REPORT INFORMATION
  Report Type: 
  Country: None (occurrence: None)
  Receive Date: 20110727
  Receipt Date: 20110717
  Transmission Date: 20111222
  Serious: Yes (Death, Other)
  Sender: FDA-Public Use
  Company Number: 2011SP024479

PATIENT
  Sex: Male

DRUGS (4)
  1. NOXAFIL [Suspect]
     Indication: ZYGOMYCOSIS
     Dosage: 200 MG
     Dates: end: 20110520
  2. NOXAFIL [Suspect]
     Indication: ASPERGILLOSIS
     Dosage: 200 MG
     Dates: end: 20110520
  3. NOXAFIL [Suspect]
     Indication: CANDIDIASIS
     Dosage: 200 MG
     Dates: end: 20110520
  4. NOXAFIL [Suspect]
     Indication: FUNGAL INFECTION
     Dosage: 200 MG
     Dates: end: 20110520

REACTIONS (1)
  - BRONCHOPULMONARY ASPERGILLOSIS [None]
